FAERS Safety Report 10203704 (Version 2)
Quarter: 2014Q3

REPORT INFORMATION
  Report Type: Spontaneous
  Country: DE (occurrence: DE)
  Receive Date: 20140529
  Receipt Date: 20140701
  Transmission Date: 20150326
  Serious: Yes (Other)
  Sender: FDA-Public Use
  Company Number: DE-ROCHE-1409787

PATIENT
  Age: 66 Year
  Sex: Female

DRUGS (4)
  1. AERIUS [Concomitant]
     Active Substance: DESLORATADINE
  2. XOLAIR [Suspect]
     Active Substance: OMALIZUMAB
     Indication: CHRONIC SPONTANEOUS URTICARIA
     Route: 058
     Dates: start: 20140516
  3. AMPHO MORONAL [Concomitant]
     Route: 065
     Dates: start: 20140409, end: 20140520
  4. URTIMED [Concomitant]
     Route: 065
     Dates: start: 20140331

REACTIONS (2)
  - Dyspnoea [Recovered/Resolved]
  - Urticaria [Recovered/Resolved]

NARRATIVE: CASE EVENT DATE: 20140520
